FAERS Safety Report 7556581-2 (Version None)
Quarter: 2011Q2

REPORT INFORMATION
  Report Type: 
  Country: None (occurrence: None)
  Receive Date: 20110615
  Receipt Date: 20110615
  Transmission Date: 20111010
  Serious: Yes (Other)
  Sender: FDA-Public Use
  Company Number: None

PATIENT
  Sex: Female

DRUGS (1)
  1. GAMASTAN S/D [Suspect]
     Dosage: 14 ML EVERY 10 DAYS IM 25 YEARS PER PATIENT
     Route: 030

REACTIONS (4)
  - BLOOD PRESSURE INCREASED [None]
  - NO REACTION ON PREVIOUS EXPOSURE TO DRUG [None]
  - TREMOR [None]
  - FEELING COLD [None]
